FAERS Safety Report 24352248 (Version 1)
Quarter: 2024Q3

REPORT INFORMATION
  Report Type: Report from Study
  Country: AT (occurrence: AT)
  Receive Date: 20240923
  Receipt Date: 20240923
  Transmission Date: 20241017
  Serious: No
  Sender: ROCHE
  Company Number: AT-ROCHE-3347180

PATIENT
  Age: 76 Year
  Sex: Female
  Weight: 55.0 kg

DRUGS (10)
  1. HERCEPTIN [Suspect]
     Active Substance: TRASTUZUMAB
     Indication: HER2 positive breast cancer
     Dosage: MOST RECENT DOSE PRIOR TO THE EVENT: 10/JUN/2022
     Route: 042
     Dates: start: 20190903, end: 20190903
  2. PERJETA [Suspect]
     Active Substance: PERTUZUMAB
     Indication: HER2 positive breast cancer
     Dosage: MOST RECENT DOSE PRIOR TO THE EVENT: 10/JUN/2022
     Route: 042
     Dates: start: 20190903, end: 20190903
  3. NAVELBINE [Suspect]
     Active Substance: VINORELBINE TARTRATE
     Indication: HER2 positive breast cancer
     Dosage: MOST RECENT DOSE PRIOR TO THE EVENT: 27/NOV/2019? FREQUENCY TEXT:OTHER
     Route: 048
     Dates: start: 20190903, end: 20191106
  4. FASLODEX [Suspect]
     Active Substance: FULVESTRANT
     Indication: HER2 positive breast cancer
     Dosage: MOST RECENT DOSE PRIOR TO THE EVENT: 28/OCT/2020
     Route: 030
     Dates: start: 20200311, end: 20200513
  5. NOLVADEX [Suspect]
     Active Substance: TAMOXIFEN CITRATE
     Indication: HER2 positive breast cancer
     Route: 048
     Dates: start: 20210421
  6. DEXAMETHASONE [Concomitant]
     Active Substance: DEXAMETHASONE
     Dosage: ONGOING = CHECKED
     Dates: start: 20200311
  7. BISOPROLOL FUMARATE [Concomitant]
     Active Substance: BISOPROLOL FUMARATE
     Indication: Tachycardia
     Dosage: ONGOING = CHECKED
     Dates: start: 20220812
  8. RIVACOR [BISOPROLOL FUMARATE] [Concomitant]
     Indication: Tachycardia
     Dosage: ONGOING = NOT CHECKED
     Dates: start: 20220819, end: 20220819
  9. BROMAZEPAM [Concomitant]
     Active Substance: BROMAZEPAM
     Dosage: ONGOING = CHECKED
     Dates: start: 20081217
  10. BROMAZEPAM [Concomitant]
     Active Substance: BROMAZEPAM
     Dates: start: 20220812

REACTIONS (1)
  - Neuropathy peripheral [Not Recovered/Not Resolved]

NARRATIVE: CASE EVENT DATE: 20220722
